FAERS Safety Report 4530074-9 (Version None)
Quarter: 2004Q4

REPORT INFORMATION
  Report Type: 
  Country: None (occurrence: None)
  Receive Date: 20041215
  Receipt Date: 20041129
  Transmission Date: 20050328
  Serious: Yes (Other)
  Sender: FDA-Public Use
  Company Number: 2004098648

PATIENT
  Age: 53 Year
  Sex: Female
  Weight: 250 kg

DRUGS (9)
  1. CELEBREX (LEVODOPA) (CELECOXIB) [Suspect]
     Indication: ARTHRITIS
     Dosage: 200 MG (200 MG, 1 IN 1 D), ORAL
     Route: 048
  2. CELEBREX (LEVODOPA) (CELECOXIB) [Suspect]
     Indication: BACK PAIN
     Dosage: 200 MG (200 MG, 1 IN 1 D), ORAL
     Route: 048
  3. POTASSIUM (POTASSIUM) [Concomitant]
  4. BUPROPION HYDROCHLORIDE [Concomitant]
  5. VALSARTAN (VALSARTAN) [Concomitant]
  6. TRAZODONE HCL [Concomitant]
  7. METAXALONE [Concomitant]
  8. CYCLOBENZAPRINE HYDROCHLORIDE [Concomitant]
  9. VICODIN [Concomitant]

REACTIONS (9)
  - ARTHRALGIA [None]
  - ARTHRITIS [None]
  - BEDRIDDEN [None]
  - CONDITION AGGRAVATED [None]
  - JOINT SWELLING [None]
  - POST PROCEDURAL PAIN [None]
  - SCREAMING [None]
  - SPEECH DISORDER [None]
  - TREATMENT NONCOMPLIANCE [None]
